FAERS Safety Report 23275555 (Version 2)
Quarter: 2024Q1

REPORT INFORMATION
  Report Type: Report from Study
  Country: CA (occurrence: CA)
  Receive Date: 20231208
  Receipt Date: 20240131
  Transmission Date: 20240410
  Serious: Yes (Other)
  Sender: FDA-Public Use
  Company Number: CA-LEO Pharma-365613

PATIENT
  Age: 34 Year
  Sex: Male

DRUGS (6)
  1. ADBRY [Suspect]
     Active Substance: TRALOKINUMAB-LDRM
     Indication: Dermatitis atopic
     Dosage: LOADING DOSE.?HOWEVER, PATIENT RECEIVED ONLY 1 INJECTION OF THE LOADING DOSE DUE TO EXPERIENCING AES
     Route: 058
     Dates: start: 20231130
  2. ADBRY [Suspect]
     Active Substance: TRALOKINUMAB-LDRM
     Indication: Dermatitis atopic
     Dosage: LOADING DOSE.?HOWEVER, PATIENT RECEIVED ONLY 1 INJECTION OF THE LOADING DOSE DUE TO EXPERIENCING AES
     Route: 058
     Dates: start: 20231130
  3. FLONASE [Concomitant]
     Active Substance: FLUTICASONE PROPIONATE
     Indication: Product used for unknown indication
     Dosage: ASKED BUT UNKNOWN?TREATMENT IS ONGOING
  4. ELIDEL [Concomitant]
     Active Substance: PIMECROLIMUS
     Indication: Product used for unknown indication
     Dosage: ASKED BUT UNKNOWN?TREATMENT IS ONGOING
  5. TOBRADEX [Concomitant]
     Active Substance: DEXAMETHASONE\TOBRAMYCIN
     Indication: Product used for unknown indication
     Dosage: ASKED BUT UNKNOWN?TREATMENT IS ONGOING
  6. RUPATADINE FUMARATE [Concomitant]
     Active Substance: RUPATADINE FUMARATE
     Indication: Product used for unknown indication
     Dosage: ASKED BUT UNKNOWN?TREATMENT IS ONGOING
     Route: 058

REACTIONS (8)
  - Tinnitus [Recovered/Resolved]
  - Nervousness [Unknown]
  - Syncope [Recovered/Resolved]
  - Incorrect dose administered [Unknown]
  - Feeling hot [Recovered/Resolved]
  - Paraesthesia [Recovered/Resolved]
  - Nausea [Recovered/Resolved]
  - Dizziness [Recovered/Resolved]

NARRATIVE: CASE EVENT DATE: 20231130
